FAERS Safety Report 14128514 (Version 1)
Quarter: 2017Q4

REPORT INFORMATION
  Report Type: Spontaneous
  Country: IT (occurrence: IT)
  Receive Date: 20171026
  Receipt Date: 20171026
  Transmission Date: 20180321
  Serious: Yes (Life-Threatening)
  Sender: FDA-Public Use
  Company Number: PHHY2017IT157376

PATIENT
  Age: 7 Year
  Sex: Male

DRUGS (3)
  1. DIFLUCORTOLONE VALERATE [Suspect]
     Active Substance: DIFLUCORTOLONE VALERATE
     Indication: STOMATITIS
     Dosage: 3 DF, QD
     Route: 048
     Dates: start: 20110204, end: 20110204
  2. AMOXICILLIN + CLAVULANATE POTASSIUM [Suspect]
     Active Substance: AMOXICILLIN\CLAVULANATE POTASSIUM
     Indication: RHINITIS
     Dosage: 50 UG/KG, QD
     Route: 048
     Dates: start: 20110204, end: 20110204
  3. JOSAMYCIN PROPIONATE [Suspect]
     Active Substance: JOSAMYCIN PROPIONATE
     Indication: STOMATITIS
     Dosage: 3 DF, QD
     Route: 048
     Dates: start: 20110204, end: 20110204

REACTIONS (6)
  - Lip oedema [Recovered/Resolved]
  - Vomiting [Recovered/Resolved]
  - Conjunctival hyperaemia [Recovered/Resolved]
  - Bronchospasm [Recovered/Resolved]
  - Rash [Recovered/Resolved]
  - Dyspnoea [Recovered/Resolved]

NARRATIVE: CASE EVENT DATE: 20110204
